FAERS Safety Report 11280332 (Version 1)
Quarter: 2015Q3

REPORT INFORMATION
  Report Type: Spontaneous
  Country: US (occurrence: US)
  Receive Date: 20150717
  Receipt Date: 20150717
  Transmission Date: 20151125
  Serious: No
  Sender: FDA-Public Use
  Company Number: US-JNJFOC-20150418977

PATIENT
  Age: 66 Year
  Sex: Female

DRUGS (3)
  1. LYRICA [Concomitant]
     Active Substance: PREGABALIN
     Indication: BACK PAIN
     Route: 048
     Dates: start: 2013
  2. MOBIC [Concomitant]
     Active Substance: MELOXICAM
     Indication: ARTHRALGIA
     Route: 048
     Dates: start: 2000
  3. XARELTO [Suspect]
     Active Substance: RIVAROXABAN
     Indication: DEEP VEIN THROMBOSIS
     Route: 048
     Dates: start: 201503, end: 201503

REACTIONS (3)
  - Asthenia [Recovered/Resolved]
  - Abdominal pain upper [Recovered/Resolved]
  - Back pain [Recovered/Resolved]

NARRATIVE: CASE EVENT DATE: 201503
